FAERS Safety Report 8986508 (Version 6)
Quarter: 2014Q1

REPORT INFORMATION
  Report Type: Report from Study
  Country: JP (occurrence: JP)
  Receive Date: 20121226
  Receipt Date: 20140105
  Transmission Date: 20141002
  Serious: Yes (Hospitalization, Other)
  Sender: FDA-Public Use
  Company Number: JP-ROCHE-1173523

PATIENT
  Age: 61 Year
  Sex: Female
  Weight: 89.08 kg

DRUGS (6)
  1. OMALIZUMAB [Suspect]
     Indication: ASTHMA
     Route: 058
     Dates: start: 20121002
  2. OMALIZUMAB [Suspect]
     Dosage: FIFTH DOSE
     Route: 058
     Dates: start: 20121127
  3. KIPRES [Concomitant]
     Route: 065
     Dates: start: 20110927
  4. PREDONINE [Concomitant]
     Route: 065
     Dates: start: 20120710, end: 20120717
  5. PREDONINE [Concomitant]
     Route: 065
     Dates: start: 20121225
  6. ADOAIR [Concomitant]
     Route: 065
     Dates: start: 20110927

REACTIONS (3)
  - Allergic granulomatous angiitis [Recovering/Resolving]
  - General physical health deterioration [Not Recovered/Not Resolved]
  - White blood cell count increased [Unknown]
